FAERS Safety Report 6256193-7 (Version None)
Quarter: 2009Q3

REPORT INFORMATION
  Report Type: 
  Country: None (occurrence: None)
  Receive Date: 20090706
  Receipt Date: 20090625
  Transmission Date: 20100115
  Serious: Yes (Other)
  Sender: FDA-Public Use
  Company Number: PHHY2009BR25772

PATIENT
  Sex: Female

DRUGS (2)
  1. RITALIN LA [Suspect]
     Dosage: 20 MG, UNK
     Route: 048
  2. RITALIN LA [Suspect]
     Dosage: 10 MG, UNK
     Route: 048

REACTIONS (2)
  - MYOCARDIAL INFARCTION [None]
  - TREMOR [None]
